FAERS Safety Report 24195120 (Version 1)
Quarter: 2024Q3

REPORT INFORMATION
  Report Type: Spontaneous
  Country: US (occurrence: US)
  Receive Date: 20240809
  Receipt Date: 20240809
  Transmission Date: 20241017
  Serious: No
  Sender: ANI
  Company Number: US-ANIPHARMA-2024-US-025840

PATIENT
  Age: 70 Year
  Sex: Female

DRUGS (15)
  1. CORTICOTROPIN [Suspect]
     Active Substance: CORTICOTROPIN
     Indication: Pulmonary sarcoidosis
     Dosage: TWO TIMES PER WEEK
     Route: 058
  2. IRON [Concomitant]
     Active Substance: IRON
  3. ZYRTEC [Concomitant]
     Active Substance: CETIRIZINE HYDROCHLORIDE
  4. ELAVIL [Concomitant]
     Active Substance: AMITRIPTYLINE HYDROCHLORIDE
  5. ESTRADERM [Concomitant]
     Active Substance: ESTRADIOL
  6. PROVERA [Concomitant]
     Active Substance: MEDROXYPROGESTERONE ACETATE
  7. FISH OIL [Concomitant]
     Active Substance: FISH OIL
  8. XANAX [Concomitant]
     Active Substance: ALPRAZOLAM
  9. PREDNISONE [Concomitant]
     Active Substance: PREDNISONE
  10. FLONASE ALLERGY RELIEF [Concomitant]
     Active Substance: FLUTICASONE PROPIONATE
  11. NEXIUM [Concomitant]
     Active Substance: ESOMEPRAZOLE MAGNESIUM
  12. TRAMADOL HCL [Concomitant]
     Active Substance: TRAMADOL HYDROCHLORIDE
  13. LIPITOR [Concomitant]
     Active Substance: ATORVASTATIN CALCIUM
  14. MAXIDEX [Concomitant]
     Active Substance: DEXAMETHASONE
  15. METOPROLOL TARTRATE [Concomitant]
     Active Substance: METOPROLOL TARTRATE

REACTIONS (2)
  - Restless legs syndrome [Recovered/Resolved]
  - Restless arm syndrome [Recovered/Resolved]
